FAERS Safety Report 7318627-6 (Version None)
Quarter: 2011Q1

REPORT INFORMATION
  Report Type: 
  Country: None (occurrence: None)
  Receive Date: 20110223
  Receipt Date: 20110223
  Transmission Date: 20110831
  Serious: Yes (Hospitalization)
  Sender: FDA-Public Use
  Company Number: None

PATIENT
  Age: 48 Year
  Sex: Female
  Weight: 50.8029 kg

DRUGS (1)
  1. IBUPROFEN AND DIPHENHYDRAMINE [Suspect]
     Indication: INSOMNIA
     Dosage: 2 TABLEST AT BEDTIME PO
     Route: 048
     Dates: start: 20110120, end: 20110120

REACTIONS (6)
  - HYPOAESTHESIA [None]
  - CEREBROVASCULAR ACCIDENT [None]
  - MYOCARDIAL INFARCTION [None]
  - CHEST PAIN [None]
  - MIDDLE INSOMNIA [None]
  - BLOOD PRESSURE INCREASED [None]
